FAERS Safety Report 16643797 (Version 4)
Quarter: 2020Q3

REPORT INFORMATION
  Report Type: Spontaneous
  Country: US (occurrence: US)
  Receive Date: 20190729
  Receipt Date: 20200818
  Transmission Date: 20201102
  Serious: Yes (Other)
  Sender: FDA-Public Use
  Company Number: US-GILEAD-2019-0419930

PATIENT
  Age: 57 Year
  Sex: Male
  Weight: 102.04 kg

DRUGS (55)
  1. ZOLPIDEM [Concomitant]
     Active Substance: ZOLPIDEM TARTRATE
  2. OXYCODONE AND ACETAMINOPHEN [Concomitant]
     Active Substance: ACETAMINOPHEN\OXYCODONE HYDROCHLORIDE
  3. GABAPENTIN. [Concomitant]
     Active Substance: GABAPENTIN
  4. CYCLOBENZAPRINE. [Concomitant]
     Active Substance: CYCLOBENZAPRINE
  5. ENOXAPARIN [Concomitant]
     Active Substance: ENOXAPARIN
  6. ATORVASTATIN [Concomitant]
     Active Substance: ATORVASTATIN
  7. HYDROCORTISONE. [Concomitant]
     Active Substance: HYDROCORTISONE
     Route: 061
  8. TRUVADA [Suspect]
     Active Substance: EMTRICITABINE\TENOFOVIR DISOPROXIL FUMARATE
     Dosage: UNK
     Route: 048
     Dates: start: 20110803, end: 201801
  9. PERMETHRIN. [Concomitant]
     Active Substance: PERMETHRIN
  10. CLONAZEPAM. [Concomitant]
     Active Substance: CLONAZEPAM
  11. DONEPEZIL. [Concomitant]
     Active Substance: DONEPEZIL
  12. CLORAZEPATE [Concomitant]
     Active Substance: CLORAZEPATE DIPOTASSIUM
  13. HYDROCHLOROTHIAZIDE. [Concomitant]
     Active Substance: HYDROCHLOROTHIAZIDE
  14. VICODIN [Concomitant]
     Active Substance: ACETAMINOPHEN\HYDROCODONE BITARTRATE
  15. TRIAMCINOLONE ACETONIDE. [Concomitant]
     Active Substance: TRIAMCINOLONE ACETONIDE
  16. RITONAVIR. [Concomitant]
     Active Substance: RITONAVIR
  17. TRUVADA [Suspect]
     Active Substance: EMTRICITABINE\TENOFOVIR DISOPROXIL FUMARATE
     Dosage: UNK
     Route: 065
     Dates: start: 20130811, end: 201801
  18. PREVACID [Concomitant]
     Active Substance: LANSOPRAZOLE
  19. IMITREX DF [Concomitant]
     Active Substance: SUMATRIPTAN SUCCINATE
  20. CLOTRIMAZOLE. [Concomitant]
     Active Substance: CLOTRIMAZOLE
  21. PROPANOLOL BOEHRINGER [Concomitant]
  22. ISENTRESS [Concomitant]
     Active Substance: RALTEGRAVIR POTASSIUM
  23. TIZANIDINE. [Concomitant]
     Active Substance: TIZANIDINE
  24. AMLODIPINE [Concomitant]
     Active Substance: AMLODIPINE BESYLATE
  25. TRUVADA [Suspect]
     Active Substance: EMTRICITABINE\TENOFOVIR DISOPROXIL FUMARATE
     Indication: HIV INFECTION
     Dosage: UNK
     Route: 048
     Dates: start: 2001
  26. CITALOPRAM [Concomitant]
     Active Substance: CITALOPRAM HYDROBROMIDE
  27. HYDROCODONE [Concomitant]
     Active Substance: HYDROCODONE
  28. LISINOPRIL. [Concomitant]
     Active Substance: LISINOPRIL
  29. CARBIDOPA. [Concomitant]
     Active Substance: CARBIDOPA
  30. ZANAFLEX [Concomitant]
     Active Substance: TIZANIDINE HYDROCHLORIDE
  31. PERCOCET [OXYCODONE HYDROCHLORIDE;OXYCODONE TEREPHTHALATE;PARACETAMOL] [Concomitant]
     Active Substance: ACETAMINOPHEN\OXYCODONE HYDROCHLORIDE\OXYCODONE TEREPHTHALATE
  32. DOXYCYCLINE. [Concomitant]
     Active Substance: DOXYCYCLINE
  33. RANITIDINE. [Concomitant]
     Active Substance: RANITIDINE
  34. SUPREP BOWEL PREP [Concomitant]
     Active Substance: MAGNESIUM SULFATE\POTASSIUM SULFATE\SODIUM SULFATE
  35. METHOCARBAMOL. [Concomitant]
     Active Substance: METHOCARBAMOL
  36. REYATAZ [Concomitant]
     Active Substance: ATAZANAVIR SULFATE
  37. SULFAMETHOXAZOLE [Concomitant]
     Active Substance: SULFAMETHOXAZOLE
  38. DIPHENHYDRAMINE. [Concomitant]
     Active Substance: DIPHENHYDRAMINE
  39. LANSOPRAZOLE. [Concomitant]
     Active Substance: LANSOPRAZOLE
  40. BUTALBITAL, ACETAMINOPHEN, AND CAFFEINE [Concomitant]
     Active Substance: ACETAMINOPHEN\BUTALBITAL\CAFFEINE
  41. LAMOTRIGINE. [Concomitant]
     Active Substance: LAMOTRIGINE
  42. NAPROXEN. [Concomitant]
     Active Substance: NAPROXEN
  43. PREZISTA [Concomitant]
     Active Substance: DARUNAVIR ETHANOLATE
  44. NORVIR [Concomitant]
     Active Substance: RITONAVIR
  45. PROMETHAZINE [Concomitant]
     Active Substance: PROMETHAZINE HYDROCHLORIDE
  46. DARUNAVIR ETHANOLATE. [Concomitant]
     Active Substance: DARUNAVIR ETHANOLATE
  47. VITAMIN D [VITAMIN D NOS] [Concomitant]
     Active Substance: VITAMIN D NOS
     Dosage: UNK
     Dates: start: 20140728
  48. DESCOVY [Concomitant]
     Active Substance: EMTRICITABINE\TENOFOVIR ALAFENAMIDE FUMARATE
     Indication: HIV INFECTION
  49. MUPIROCIN. [Concomitant]
     Active Substance: MUPIROCIN
  50. BUSPIRONE [Concomitant]
     Active Substance: BUSPIRONE HYDROCHLORIDE
  51. METOCLOPRAMIDE. [Concomitant]
     Active Substance: METOCLOPRAMIDE
  52. TRAMADOL. [Concomitant]
     Active Substance: TRAMADOL
  53. METAXALONE. [Concomitant]
     Active Substance: METAXALONE
  54. IBUPROFEN. [Concomitant]
     Active Substance: IBUPROFEN
  55. NORCO [Concomitant]
     Active Substance: ACETAMINOPHEN\HYDROCODONE BITARTRATE

REACTIONS (5)
  - Osteonecrosis [Not Recovered/Not Resolved]
  - Bone loss [Unknown]
  - Osteoporosis [Not Recovered/Not Resolved]
  - Osteopenia [Not Recovered/Not Resolved]
  - Bone density decreased [Unknown]

NARRATIVE: CASE EVENT DATE: 20130331
